FAERS Safety Report 13918494 (Version 2)
Quarter: 2017Q3

REPORT INFORMATION
  Report Type: Spontaneous
  Country: JP (occurrence: JP)
  Receive Date: 20170829
  Receipt Date: 20170831
  Transmission Date: 20171127
  Serious: Yes (Hospitalization, Other)
  Sender: FDA-Public Use
  Company Number: JP-BRISTOL-MYERS SQUIBB COMPANY-BMS-2017-076513

PATIENT
  Age: 9 Decade
  Sex: Female

DRUGS (1)
  1. EMPLICITI [Suspect]
     Active Substance: ELOTUZUMAB
     Indication: PLASMA CELL MYELOMA
     Dosage: 600 MG, QWK
     Route: 041
     Dates: start: 20170810, end: 20170810

REACTIONS (2)
  - Pyrexia [Recovering/Resolving]
  - Intention tremor [Unknown]

NARRATIVE: CASE EVENT DATE: 20170810
